FAERS Safety Report 8461290-1 (Version None)
Quarter: 2012Q2

REPORT INFORMATION
  Report Type: 
  Country: None (occurrence: None)
  Receive Date: 20120625
  Receipt Date: 20120613
  Transmission Date: 20120825
  Serious: No
  Sender: FDA-Public Use
  Company Number: FR-JNJFOC-20120606513

PATIENT
  Age: 87 Year
  Sex: Female

DRUGS (2)
  1. DURAGESIC-100 [Suspect]
     Dosage: DUROGESIC* WAS INITIATED FOR APPROXIMATELY 1 MONTH AND HALF
     Route: 062
     Dates: end: 20120601
  2. DURAGESIC-100 [Suspect]
     Indication: WOUND
     Route: 062
     Dates: start: 20120601

REACTIONS (3)
  - WRONG TECHNIQUE IN DRUG USAGE PROCESS [None]
  - HYPERSENSITIVITY [None]
  - PRODUCT QUALITY ISSUE [None]
